FAERS Safety Report 9638317 (Version 2)
Quarter: 2013Q4

REPORT INFORMATION
  Report Type: Spontaneous
  Country: US (occurrence: US)
  Receive Date: 20131022
  Receipt Date: 20131218
  Transmission Date: 20140711
  Serious: Yes (Hospitalization)
  Sender: FDA-Public Use
  Company Number: US-GLAXOSMITHKLINE-A1045740A

PATIENT
  Age: 74 Year
  Sex: Female

DRUGS (9)
  1. ADVAIR [Suspect]
     Indication: DYSPNOEA
     Dosage: 1PUFF TWICE PER DAY
     Route: 055
  2. PAROXETINE [Suspect]
     Indication: PRODUCT USED FOR UNKNOWN INDICATION
     Route: 048
  3. ATENOLOL [Concomitant]
  4. ANTI-CHOLESTEROL MEDICATION [Concomitant]
  5. PRAMIPEXOLE [Concomitant]
  6. SERTRALINE [Concomitant]
  7. TRAZODONE [Concomitant]
  8. ALBUTEROL [Concomitant]
  9. PROBIOTICS [Concomitant]

REACTIONS (7)
  - Pulmonary thrombosis [Unknown]
  - Abdominal pain upper [Unknown]
  - Drug hypersensitivity [Unknown]
  - Abdominal discomfort [Unknown]
  - Oropharyngeal pain [Unknown]
  - Drug ineffective [Unknown]
  - Product quality issue [Unknown]
